FAERS Safety Report 5426654-9 (Version None)
Quarter: 2007Q3

REPORT INFORMATION
  Report Type: 
  Country: None (occurrence: None)
  Receive Date: 20070731
  Receipt Date: 20070620
  Transmission Date: 20080115
  Serious: No
  Sender: FDA-Public Use
  Company Number: 2006PV011744

PATIENT
  Age: 65 Year
  Sex: Female
  Weight: 53.5 kg

DRUGS (9)
  1. EXENATIDE (EXENATIDE) PEN, DISPOSABLE [Suspect]
     Indication: TYPE 2 DIABETES MELLITUS
     Dosage: 10 UG, 2/D, SUBCUTANEOUS; 5 UG, 2/D, 5 UG, 2/D,  10 UG, 2/D,5 UG, 2/D
     Route: 058
     Dates: start: 20060401, end: 20060101
  2. EXENATIDE (EXENATIDE) PEN, DISPOSABLE [Suspect]
     Indication: TYPE 2 DIABETES MELLITUS
     Dosage: 10 UG, 2/D, SUBCUTANEOUS; 5 UG, 2/D, 5 UG, 2/D,  10 UG, 2/D,5 UG, 2/D
     Route: 058
     Dates: start: 20060201, end: 20060307
  3. EXENATIDE (EXENATIDE) PEN, DISPOSABLE [Suspect]
     Indication: TYPE 2 DIABETES MELLITUS
     Dosage: 10 UG, 2/D, SUBCUTANEOUS; 5 UG, 2/D, 5 UG, 2/D,  10 UG, 2/D,5 UG, 2/D
     Route: 058
     Dates: start: 20060301, end: 20060401
  4. EXENATIDE (EXENATIDE) PEN, DISPOSABLE [Suspect]
     Indication: TYPE 2 DIABETES MELLITUS
     Dosage: 10 UG, 2/D, SUBCUTANEOUS; 5 UG, 2/D, 5 UG, 2/D,  10 UG, 2/D,5 UG, 2/D
     Route: 058
     Dates: start: 20060101
  5. EXENATIDE (EXENATIDE) PEN, DISPOSABLE [Suspect]
     Indication: TYPE 2 DIABETES MELLITUS
     Dosage: 10 UG, 2/D, SUBCUTANEOUS; 5 UG, 2/D, 5 UG, 2/D,  10 UG, 2/D,5 UG, 2/D
     Route: 058
     Dates: start: 20060308
  6. EXENATIDE (EXENATIDE) PEN, DISPOSABLE [Suspect]
  7. EXENATIDE (EXENATIDE) PEN, DISPOSABLE [Suspect]
  8. AVANIDIA [Concomitant]
  9. AVANDIA [Concomitant]

REACTIONS (8)
  - BLOOD CHOLESTEROL INCREASED [None]
  - BLOOD GLUCOSE DECREASED [None]
  - BLOOD GLUCOSE INCREASED [None]
  - BLOOD IRON DECREASED [None]
  - DISORIENTATION [None]
  - LETHARGY [None]
  - NAUSEA [None]
  - WEIGHT DECREASED [None]
